FAERS Safety Report 18910281 (Version 1)
Quarter: 2021Q1

REPORT INFORMATION
  Report Type: Spontaneous
  Country: US (occurrence: US)
  Receive Date: 20210218
  Receipt Date: 20210218
  Transmission Date: 20210420
  Serious: Yes (Death, Other)
  Sender: FDA-Public Use
  Company Number: US-GLAXOSMITHKLINE-US2021GSK045459

PATIENT
  Sex: Female

DRUGS (2)
  1. ZANTAC [Suspect]
     Active Substance: RANITIDINE HYDROCHLORIDE
     Indication: DYSPEPSIA
     Dosage: UNK UNK, U
     Route: 065
     Dates: start: 200006, end: 201208
  2. ZANTAC [Suspect]
     Active Substance: RANITIDINE HYDROCHLORIDE
     Indication: DYSPEPSIA
     Dosage: UNK UNK, U
     Route: 065
     Dates: start: 200006, end: 201208

REACTIONS (11)
  - Lung neoplasm malignant [Unknown]
  - Neoplasm malignant [Fatal]
  - Uterine cancer [Unknown]
  - Small intestine carcinoma [Unknown]
  - Ovarian cancer [Unknown]
  - Pancreatic carcinoma [Unknown]
  - Renal cancer [Unknown]
  - Gastrointestinal carcinoma [Unknown]
  - Gastric cancer [Unknown]
  - Oesophageal carcinoma [Unknown]
  - Hepatic cancer [Unknown]
